FAERS Safety Report 24133894 (Version 2)
Quarter: 2024Q3

REPORT INFORMATION
  Report Type: Spontaneous
  Country: TH (occurrence: TH)
  Receive Date: 20240724
  Receipt Date: 20240909
  Transmission Date: 20241016
  Serious: Yes (Other)
  Sender: BAYER
  Company Number: TH-BAYER-2024A106865

PATIENT
  Sex: Male

DRUGS (1)
  1. REGORAFENIB [Suspect]
     Active Substance: REGORAFENIB
     Indication: Colorectal cancer
     Dosage: 120 MG
     Dates: start: 20240119

REACTIONS (2)
  - Colorectal cancer [None]
  - Off label use [None]

NARRATIVE: CASE EVENT DATE: 20240119
